FAERS Safety Report 10068182 (Version 3)
Quarter: 2014Q2

REPORT INFORMATION
  Report Type: Spontaneous
  Country: US (occurrence: US)
  Receive Date: 20140409
  Receipt Date: 20140528
  Transmission Date: 20141212
  Serious: No
  Sender: FDA-Public Use
  Company Number: US-PFIZER INC-2014099369

PATIENT
  Age: 56 Year
  Sex: Female
  Weight: 58.96 kg

DRUGS (5)
  1. XELJANZ [Suspect]
     Indication: RHEUMATOID ARTHRITIS
     Dosage: 5 MG, 2X/DAY
     Route: 048
     Dates: start: 20140315, end: 201403
  2. PROZAC [Concomitant]
     Indication: DEPRESSION
     Dosage: 60 MG, 1X/DAY
  3. WELLBUTRIN [Concomitant]
     Dosage: UNK
  4. XANAX [Concomitant]
     Dosage: 1 MG, 2X/DAY
  5. DURAGESIC [Concomitant]
     Dosage: UNK

REACTIONS (5)
  - Malaise [Recovered/Resolved]
  - Fatigue [Recovered/Resolved]
  - Somnolence [Recovered/Resolved]
  - Decreased appetite [Recovered/Resolved]
  - Drug ineffective [Recovered/Resolved]
